FAERS Safety Report 10549889 (Version 1)
Quarter: 2014Q4

REPORT INFORMATION
  Report Type: Spontaneous
  Country: CA (occurrence: CA)
  Receive Date: 20141028
  Receipt Date: 20141028
  Transmission Date: 20150529
  Serious: Yes (Hospitalization)
  Sender: FDA-Public Use
  Company Number: CA-ASTRAZENECA-2014SE81003

PATIENT
  Age: 67 Year
  Sex: Female

DRUGS (12)
  1. BISOPROLOL [Concomitant]
     Active Substance: BISOPROLOL
     Dosage: SANDOZ
  2. ATIVAN [Concomitant]
     Active Substance: LORAZEPAM
     Dosage: AT NIGHT
  3. FUROSEMIDE. [Concomitant]
     Active Substance: FUROSEMIDE
  4. SPIROLANCLANT [Concomitant]
  5. RADIOTHERAPY [Concomitant]
     Active Substance: RADIATION THERAPY
  6. XARELTO [Concomitant]
     Active Substance: RIVAROXABAN
  7. CHEMOTHERAPY [Concomitant]
     Active Substance: UNSPECIFIED INGREDIENT
  8. DEXILANT [Concomitant]
     Active Substance: DEXLANSOPRAZOLE
  9. ARIMIDEX [Suspect]
     Active Substance: ANASTROZOLE
     Indication: BREAST CANCER
     Route: 065
     Dates: start: 20111020
  10. CRESTOR [Concomitant]
     Active Substance: ROSUVASTATIN CALCIUM
  11. SULPHATE FERROUS [Concomitant]
     Dosage: DAILY
  12. ALLOPURINOL. [Concomitant]
     Active Substance: ALLOPURINOL

REACTIONS (3)
  - Cardiac disorder [Unknown]
  - Weight increased [Recovering/Resolving]
  - Swelling [Recovering/Resolving]
